FAERS Safety Report 12597306 (Version 1)
Quarter: 2016Q3

REPORT INFORMATION
  Report Type: Spontaneous
  Country: US (occurrence: None)
  Receive Date: 20160726
  Receipt Date: 20160726
  Transmission Date: 20161109
  Serious: Yes (Disabling)
  Sender: FDA-Public Use
  Company Number: None

PATIENT
  Sex: Male
  Weight: 90.72 kg

DRUGS (2)
  1. CITALOPRAM [Concomitant]
     Active Substance: CITALOPRAM HYDROBROMIDE
  2. TRANSDERM SCOP [Suspect]
     Active Substance: SCOPOLAMINE
     Indication: NAUSEA
     Dosage: 4 PATCH(ES) 72 APPLIED AS MEDICATED PATCH TO SKIN

REACTIONS (21)
  - Depression [None]
  - Bedridden [None]
  - Dizziness [None]
  - Mania [None]
  - Disease recurrence [None]
  - Anger [None]
  - Confusional state [None]
  - Diplopia [None]
  - Pruritus [None]
  - Sensory disturbance [None]
  - Incorrect drug administration duration [None]
  - Balance disorder [None]
  - Drug withdrawal syndrome [None]
  - Fall [None]
  - Paranoia [None]
  - Delusion [None]
  - Aggression [None]
  - Quality of life decreased [None]
  - Vertigo [None]
  - Nausea [None]
  - Anxiety [None]
